FAERS Safety Report 10052626 (Version 1)
Quarter: 2014Q1

REPORT INFORMATION
  Report Type: Spontaneous
  Country: US (occurrence: None)
  Receive Date: 20140331
  Receipt Date: 20140331
  Transmission Date: 20141002
  Serious: Yes (Hospitalization)
  Sender: FDA-Public Use
  Company Number: UTC-046071

PATIENT
  Age: 29 Year
  Sex: Female
  Weight: 63.5 kg

DRUGS (4)
  1. REMODULIN [Suspect]
     Indication: PULMONARY ARTERIAL HYPERTENSION
     Dosage: 0.103UG/KG/MIN (0.013 UG/KG, 1 IN 1 MIN)
     Route: 058
     Dates: start: 20130116
  2. COUMADIN (WARFARIN SODIUM) [Concomitant]
  3. LETAIRIS (AMBRISENTAN) (TABLETS) [Concomitant]
  4. REVATIO (SLIDENAFIL CITRATE) [Concomitant]

REACTIONS (8)
  - Chest pain [None]
  - Abdominal pain [None]
  - Dyspnoea [None]
  - Malaise [None]
  - Device malfunction [None]
  - Headache [None]
  - Nausea [None]
  - Diarrhoea [None]
